FAERS Safety Report 6119832-7 (Version None)
Quarter: 2009Q1

REPORT INFORMATION
  Report Type: 
  Country: None (occurrence: None)
  Receive Date: 20090316
  Receipt Date: 20090304
  Transmission Date: 20090719
  Serious: Yes (Hospitalization)
  Sender: FDA-Public Use
  Company Number: PHHY2009DE09313

PATIENT
  Sex: Male

DRUGS (13)
  1. LAMISIL [Suspect]
     Dosage: 300 MG EVERY 2 DAYS
     Route: 048
     Dates: end: 20081225
  2. NORTRIPTYLINE HCL [Concomitant]
     Indication: DEPRESSION
     Dosage: 25 MG
     Route: 048
     Dates: start: 20081213, end: 20081215
  3. NORTRIPTYLINE HCL [Concomitant]
     Dosage: 50 MG
     Route: 048
     Dates: start: 20081216, end: 20081217
  4. NORTRIPTYLINE HCL [Concomitant]
     Dosage: 75 MG
     Route: 048
     Dates: start: 20081218, end: 20081222
  5. NORTRIPTYLINE HCL [Concomitant]
     Dosage: 100 MG
     Route: 048
     Dates: start: 20081223, end: 20081225
  6. NORTRIPTYLINE HCL [Concomitant]
     Dosage: 50 MG
     Route: 048
     Dates: start: 20081226
  7. RISPERIDONE [Concomitant]
     Indication: DEPRESSION
     Dosage: 1 MG
     Dates: start: 20081213, end: 20081214
  8. RISPERIDONE [Concomitant]
     Dosage: 1.5 MG
     Dates: start: 20081215
  9. BELOC ZOK [Concomitant]
     Indication: HYPERTENSION
     Dosage: 95 MG
  10. SORTIS [Concomitant]
     Indication: HYPERLIPIDAEMIA
     Dosage: 10 MG
  11. LORZAAR [Concomitant]
     Indication: HYPERTENSION
     Dosage: 50 MG
  12. HCT HEXAL [Concomitant]
     Indication: HYPERTENSION
     Dosage: 25 MG
     Dates: start: 20081225
  13. NEXIUM [Concomitant]
     Indication: ABDOMINAL DISCOMFORT
     Dosage: 80/40 MG
     Dates: start: 20081226, end: 20081227

REACTIONS (9)
  - ASPIRATION [None]
  - C-REACTIVE PROTEIN INCREASED [None]
  - CEREBROVASCULAR ACCIDENT [None]
  - DELIRIUM [None]
  - DISORIENTATION [None]
  - HYPOKALAEMIA [None]
  - MEMORY IMPAIRMENT [None]
  - PNEUMONIA [None]
  - PYREXIA [None]
